FAERS Safety Report 21719420 (Version 1)
Quarter: 2022Q4

REPORT INFORMATION
  Report Type: 
  Country: FR (occurrence: None)
  Receive Date: 20221213
  Receipt Date: 20221213
  Transmission Date: 20230113
  Serious: Yes (Hospitalization)
  Sender: FDA-Public Use
  Company Number: FR-Orion Corporation ORION PHARMA-TREX2022-0322

PATIENT
  Age: 79 Year
  Sex: Female

DRUGS (16)
  1. METHOTREXATE [Suspect]
     Active Substance: METHOTREXATE
     Indication: Rheumatic disorder
     Route: 065
     Dates: start: 201411, end: 202012
  2. METHOTREXATE [Suspect]
     Active Substance: METHOTREXATE
     Route: 065
     Dates: start: 202012, end: 20210409
  3. PENTASA [Concomitant]
     Active Substance: MESALAMINE
     Route: 065
  4. BRINZOLAMIDE [Concomitant]
     Active Substance: BRINZOLAMIDE
     Dosage: 2 DROP (1/12 MILLILITRE)
     Route: 065
  5. BISOPROLOL [Concomitant]
     Active Substance: BISOPROLOL
     Route: 065
  6. PROBIOTICS NOS [Concomitant]
     Active Substance: PROBIOTICS NOS
     Dosage: 3 DROP (1/12 MILLILITRE) EVERY 1 DAY
     Route: 065
  7. PANTOPRAZOLE [Concomitant]
     Active Substance: PANTOPRAZOLE
     Route: 065
  8. AMITRIPTYLINE HYDROCHLORIDE [Concomitant]
     Active Substance: AMITRIPTYLINE HYDROCHLORIDE
     Dosage: 151.5 DOSAGE FORM EVERY 1 DAY(S)
     Route: 065
  9. DEXERYL [Concomitant]
     Route: 065
  10. FUROSEMIDE [Concomitant]
     Active Substance: FUROSEMIDE
     Dosage: 40 MILLIGRAM EVERY 1 DAY(S)
     Route: 065
  11. LEVOTHYROXINE [Concomitant]
     Active Substance: LEVOTHYROXINE
     Dosage: 100 MICROGRAM EVERY 1 DAY
     Route: 065
  12. METFORMIN HYDROCHLORIDE [Concomitant]
     Active Substance: METFORMIN HYDROCHLORIDE
     Dosage: 1000 MG 2X/DAY
     Route: 065
  13. BIMATOPROST\TIMOLOL [Concomitant]
     Active Substance: BIMATOPROST\TIMOLOL
     Dosage: 1 DROP (1/12 MILLILITRE) EVERY 1 DAY
     Route: 065
  14. DIFFU [Concomitant]
     Dosage: 2 CAPSULE 2X/DAY
     Route: 065
  15. STEAGLATE DE PREDNISOLONE [Concomitant]
     Route: 065
  16. FOLIC ACID [Concomitant]
     Active Substance: FOLIC ACID
     Dosage: 5 MILLIGRAM EVERY 1 WEEK
     Route: 065
     Dates: end: 20210410

REACTIONS (3)
  - General physical health deterioration [Recovering/Resolving]
  - Pancytopenia [Recovering/Resolving]
  - Aphthous ulcer [Recovering/Resolving]

NARRATIVE: CASE EVENT DATE: 20210101
